FAERS Safety Report 7562411-5 (Version None)
Quarter: 2011Q2

REPORT INFORMATION
  Report Type: 
  Country: None (occurrence: None)
  Receive Date: 20110614
  Receipt Date: 20110531
  Transmission Date: 20111010
  Serious: Yes (Life-Threatening, Hospitalization, Other)
  Sender: FDA-Public Use
  Company Number: 2011MA006595

PATIENT
  Age: 73 Year
  Sex: Female

DRUGS (3)
  1. METOPROLOL TARTRATE [Concomitant]
  2. RAMIPRIL [Suspect]
     Indication: HYPERTENSION
  3. ASPIRIN [Concomitant]

REACTIONS (5)
  - LIP SWELLING [None]
  - DROOLING [None]
  - DYSPHAGIA [None]
  - DYSPNOEA [None]
  - SWOLLEN TONGUE [None]
